FAERS Safety Report 6470300-2 (Version None)
Quarter: 2009Q4

REPORT INFORMATION
  Report Type: 
  Country: None (occurrence: None)
  Receive Date: 20091203
  Receipt Date: 20091117
  Transmission Date: 20100525
  Serious: Yes (Death)
  Sender: FDA-Public Use
  Company Number: TR-SANOFI-AVENTIS-2009SA003596

PATIENT
  Age: 43 Year
  Sex: Male

DRUGS (5)
  1. AFLIBERCEPT [Suspect]
     Indication: NON-SMALL CELL LUNG CANCER
     Route: 042
     Dates: start: 20091016, end: 20091016
  2. AFLIBERCEPT [Suspect]
     Route: 042
     Dates: start: 20090925, end: 20090925
  3. DOCETAXEL [Suspect]
     Indication: NON-SMALL CELL LUNG CANCER
     Route: 042
     Dates: start: 20091016, end: 20091016
  4. DOCETAXEL [Suspect]
     Route: 042
     Dates: start: 20090925, end: 20090925
  5. CORTICOSTEROID NOS [Concomitant]

REACTIONS (1)
  - SUDDEN DEATH [None]
